FAERS Safety Report 9998996 (Version 1)
Quarter: 2014Q1

REPORT INFORMATION
  Report Type: Report from Study
  Country: MX (occurrence: MX)
  Receive Date: 20140312
  Receipt Date: 20140312
  Transmission Date: 20141002
  Serious: Yes (Other)
  Sender: FDA-Public Use
  Company Number: MX-ROCHE-1361348

PATIENT
  Age: 63 Year
  Sex: Male
  Weight: 75 kg

DRUGS (3)
  1. XELODA [Suspect]
     Indication: COLORECTAL CANCER
     Dosage: DURING 14 DAYS OF TREATMENT AND 7 DAYS OF REST
     Route: 065
  2. AVASTIN [Suspect]
     Indication: COLORECTAL CANCER
     Route: 065
  3. OXALIPLATIN [Suspect]
     Indication: COLORECTAL CANCER
     Route: 065

REACTIONS (4)
  - Diarrhoea [Unknown]
  - Hypertension [Unknown]
  - Palmar-plantar erythrodysaesthesia syndrome [Unknown]
  - Nausea [Unknown]
